FAERS Safety Report 8594483-3 (Version None)
Quarter: 2012Q3

REPORT INFORMATION
  Report Type: 
  Country: None (occurrence: None)
  Receive Date: 20120801
  Receipt Date: 20120718
  Transmission Date: 20120928
  Serious: Yes (Other)
  Sender: FDA-Public Use
  Company Number: ENTC2012-0239

PATIENT
  Age: 72 Year
  Sex: Male

DRUGS (9)
  1. VENLAFAXINE HCL [Concomitant]
  2. FUROSEMIDE [Concomitant]
  3. CLONAZEPAM [Concomitant]
  4. AMANTADINE HCL [Concomitant]
  5. STALEVO 50 [Suspect]
     Dosage: 450 MG, 3 IN 1 D,
  6. BENAZEPRIL HYDROCHLORIDE [Concomitant]
  7. POTASSIUM (POTASSIUM) [Concomitant]
  8. ATENOLOL [Concomitant]
  9. PRAVASTATIN [Concomitant]

REACTIONS (3)
  - THYROID DISORDER [None]
  - ARTHROPATHY [None]
  - NEPHROLITHIASIS [None]
